FAERS Safety Report 7748235-4 (Version None)
Quarter: 2011Q3

REPORT INFORMATION
  Report Type: 
  Country: None (occurrence: None)
  Receive Date: 20110913
  Receipt Date: 20110725
  Transmission Date: 20111222
  Serious: Yes (Hospitalization, Other)
  Sender: FDA-Public Use
  Company Number: JP-ELI_LILLY_AND_COMPANY-JP201108000871

PATIENT
  Age: 37 Year
  Sex: Female
  Weight: 43.2 kg

DRUGS (11)
  1. GASMOTIN [Concomitant]
  2. KETALAR [Concomitant]
  3. FENTANYL [Concomitant]
  4. CYMBALTA [Suspect]
     Indication: NEURALGIA
     Dosage: 20 MG, QD
     Route: 048
     Dates: start: 20110629, end: 20110630
  5. ANTIBIOTICS-RESISTANT LACTIC ACID BACTERIAE [Concomitant]
  6. MAGNESIUM SULFATE [Concomitant]
  7. GASCON [Concomitant]
  8. PAXIL [Concomitant]
     Indication: DEPRESSION
     Dosage: UNK
     Dates: end: 20110628
  9. DEPAS [Concomitant]
  10. DICLOFENAC SODIUM [Concomitant]
  11. DUROTEP [Concomitant]
     Route: 062

REACTIONS (5)
  - ASPARTATE AMINOTRANSFERASE INCREASED [None]
  - ALANINE AMINOTRANSFERASE INCREASED [None]
  - HEPATIC FUNCTION ABNORMAL [None]
  - GAMMA-GLUTAMYLTRANSFERASE INCREASED [None]
  - OFF LABEL USE [None]
